FAERS Safety Report 11662463 (Version 2)
Quarter: 2015Q4

REPORT INFORMATION
  Report Type: Spontaneous
  Country: US (occurrence: US)
  Receive Date: 20151027
  Receipt Date: 20151027
  Transmission Date: 20160304
  Serious: No
  Sender: FDA-Public Use
  Company Number: US-MEDA-2012100145

PATIENT

DRUGS (7)
  1. DYMISTA [Suspect]
     Active Substance: AZELASTINE HYDROCHLORIDE\FLUTICASONE PROPIONATE
     Dates: start: 20120925, end: 20120927
  2. ASTEPRO [Concomitant]
     Active Substance: AZELASTINE HYDROCHLORIDE
  3. MICARDIS HCT [Concomitant]
     Active Substance: HYDROCHLOROTHIAZIDE\TELMISARTAN
  4. SIMCOR [Concomitant]
     Active Substance: NIACIN\SIMVASTATIN
  5. WARFARIN [Concomitant]
     Active Substance: WARFARIN
  6. OMEPRAZOLE CR [Concomitant]
  7. CARVEDILOL. [Concomitant]
     Active Substance: CARVEDILOL

REACTIONS (2)
  - Pruritus [Unknown]
  - Rash papular [Recovered/Resolved]

NARRATIVE: CASE EVENT DATE: 20120925
